FAERS Safety Report 13455775 (Version 2)
Quarter: 2017Q2

REPORT INFORMATION
  Report Type: Spontaneous
  Country: US (occurrence: US)
  Receive Date: 20170418
  Receipt Date: 20170508
  Transmission Date: 20170830
  Serious: No
  Sender: FDA-Public Use
  Company Number: US-009507513-1704USA000604

PATIENT
  Age: 48 Year
  Sex: Female
  Weight: 63.49 kg

DRUGS (2)
  1. NEXPLANON [Suspect]
     Active Substance: ETONOGESTREL
     Indication: CONTRACEPTION
     Dosage: 1 IMPLANT EVERY 3 YEARS IN THE RIGHT ARM
     Route: 059
     Dates: start: 20160203
  2. NATURE-THROID [Concomitant]
     Active Substance: THYROID, PORCINE

REACTIONS (5)
  - Migration of implanted drug [Not Recovered/Not Resolved]
  - Device deployment issue [Not Recovered/Not Resolved]
  - Menorrhagia [Unknown]
  - Paraesthesia [Not Recovered/Not Resolved]
  - Complication associated with device [Recovered/Resolved]

NARRATIVE: CASE EVENT DATE: 201608
